FAERS Safety Report 4508765-5 (Version None)
Quarter: 2004Q4

REPORT INFORMATION
  Report Type: 
  Country: None (occurrence: None)
  Receive Date: 20041123
  Receipt Date: 20040719
  Transmission Date: 20050328
  Serious: No
  Sender: FDA-Public Use
  Company Number: US-GLAXOSMITHKLINE-A0518822A

PATIENT
  Sex: Female

DRUGS (2)
  1. WELLBUTRIN SR [Suspect]
     Indication: DEPRESSION
     Route: 067
  2. TRAZODONE HCL [Concomitant]

REACTIONS (3)
  - URINARY TRACT INFECTION [None]
  - VAGINAL BURNING SENSATION [None]
  - VAGINAL MYCOSIS [None]
